FAERS Safety Report 8202200-1 (Version None)
Quarter: 2012Q1

REPORT INFORMATION
  Report Type: 
  Country: None (occurrence: None)
  Receive Date: 20120312
  Receipt Date: 20120305
  Transmission Date: 20120608
  Serious: Yes (Hospitalization)
  Sender: FDA-Public Use
  Company Number: US-ALEXION PHARMACEUTICALS INC.-A201200179

PATIENT
  Sex: Male

DRUGS (2)
  1. SOLIRIS [Suspect]
     Indication: HAEMOLYTIC URAEMIC SYNDROME
     Dosage: UNK, QW
     Route: 042
  2. SOLIRIS [Suspect]
     Dosage: UNK, QOW
     Route: 042

REACTIONS (2)
  - CONDITION AGGRAVATED [None]
  - HAEMOLYTIC URAEMIC SYNDROME [None]
